FAERS Safety Report 9346763 (Version 1)
Quarter: 2013Q2

REPORT INFORMATION
  Report Type: Spontaneous
  Country: FR (occurrence: FR)
  Receive Date: 20130613
  Receipt Date: 20130613
  Transmission Date: 20140414
  Serious: Yes (Death, Hospitalization)
  Sender: FDA-Public Use
  Company Number: FR-TEVA-411942ISR

PATIENT
  Age: 83 Year
  Sex: Female

DRUGS (1)
  1. FUROSEMIDE TEVA 40 MG [Suspect]

REACTIONS (3)
  - Cardiac failure [Fatal]
  - Pulmonary oedema [Fatal]
  - Abdominal pain [Unknown]
